FAERS Safety Report 9745178 (Version 3)
Quarter: 2014Q2

REPORT INFORMATION
  Report Type: Report from Study
  Country: US (occurrence: US)
  Receive Date: 20131211
  Receipt Date: 20140529
  Transmission Date: 20141212
  Serious: Yes (Hospitalization, Other)
  Sender: FDA-Public Use
  Company Number: US-TEVA-449779USA

PATIENT
  Age: 68 Year
  Sex: Male
  Weight: 94.1 kg

DRUGS (11)
  1. BENDAMUSTINE [Suspect]
     Indication: CHRONIC LYMPHOCYTIC LEUKAEMIA
     Route: 042
     Dates: start: 20130829
  2. BENDAMUSTINE [Suspect]
     Route: 042
     Dates: start: 20131120
  3. RITUXIMAB [Suspect]
     Indication: CHRONIC LYMPHOCYTIC LEUKAEMIA
     Dosage: 35 MILLIGRAM DAILY;
     Route: 042
     Dates: start: 20130820
  4. RITUXIMAB [Suspect]
     Route: 042
     Dates: start: 20131119
  5. IBRUTINIB/PLACEBO [Suspect]
     Indication: CHRONIC LYMPHOCYTIC LEUKAEMIA
     Route: 048
     Dates: start: 20130829
  6. IBRUTINIB/PLACEBO [Suspect]
     Route: 048
     Dates: start: 20131125
  7. ASPIRIN [Suspect]
     Indication: CORONARY ARTERY DISEASE
  8. NEULASTA [Concomitant]
     Indication: PRODUCT USED FOR UNKNOWN INDICATION
  9. RANITIDINE [Concomitant]
     Indication: PRODUCT USED FOR UNKNOWN INDICATION
  10. PRILOSEC [Concomitant]
     Indication: PRODUCT USED FOR UNKNOWN INDICATION
     Dosage: INTERMITTENTLY
  11. PEPTO BISMOL [Concomitant]
     Dates: start: 20131117

REACTIONS (3)
  - Gastrointestinal haemorrhage [Unknown]
  - Gastritis [Recovered/Resolved]
  - Oesophageal ulcer [Recovered/Resolved]
